FAERS Safety Report 8917222 (Version 3)
Quarter: 2012Q4

REPORT INFORMATION
  Report Type: 
  Country: US (occurrence: US)
  Receive Date: 20121120
  Receipt Date: 20121214
  Transmission Date: 20130627
  Serious: Yes (Death, Other)
  Sender: FDA-Public Use
  Company Number: US-PFIZER INC-2012289565

PATIENT
  Age: 55 Year
  Sex: Male

DRUGS (1)
  1. ELLENCE [Suspect]
     Indication: MALIGNANT NEOPLASM OF STOMACH
     Dosage: 90 mg, 1x/day, 1 of 6 cycles
     Dates: start: 20121005

REACTIONS (1)
  - Death [Fatal]
